FAERS Safety Report 4348343-4 (Version None)
Quarter: 2004Q2

REPORT INFORMATION
  Report Type: 
  Country: None (occurrence: None)
  Receive Date: 20040427
  Receipt Date: 20040414
  Transmission Date: 20050107
  Serious: Yes (Other)
  Sender: FDA-Public Use
  Company Number: GB-GLAXOSMITHKLINE-B0329938A

PATIENT
  Age: 34 Year
  Sex: Female

DRUGS (3)
  1. ZYBAN [Suspect]
     Dosage: 150MG SEE DOSAGE TEXT
  2. ALBUTEROL SULFATE [Concomitant]
     Indication: ASTHMA
  3. BECOTIDE [Concomitant]
     Indication: ASTHMA

REACTIONS (2)
  - ABORTION SPONTANEOUS [None]
  - FOETAL GROWTH RETARDATION [None]
